FAERS Safety Report 6135744-7 (Version None)
Quarter: 2009Q1

REPORT INFORMATION
  Report Type: 
  Country: None (occurrence: None)
  Receive Date: 20090327
  Receipt Date: 20090319
  Transmission Date: 20090719
  Serious: Yes (Other)
  Sender: FDA-Public Use
  Company Number: PHEH2009US02821

PATIENT
  Sex: Female

DRUGS (2)
  1. GLEEVEC [Suspect]
     Dosage: 400 MG, UNK
     Dates: start: 20080910
  2. GLEEVEC [Suspect]
     Dosage: 300 MG, UNK

REACTIONS (3)
  - FALL [None]
  - HEAD INJURY [None]
  - NAUSEA [None]
